FAERS Safety Report 9781473 (Version 3)
Quarter: 2016Q3

REPORT INFORMATION
  Report Type: Spontaneous
  Country: IT (occurrence: IT)
  Receive Date: 20131224
  Receipt Date: 20160726
  Transmission Date: 20161109
  Serious: Yes (Death, Hospitalization)
  Sender: FDA-Public Use
  Company Number: IT-BRISTOL-MYERS SQUIBB COMPANY-19934496

PATIENT
  Age: 63 Year
  Sex: Male

DRUGS (3)
  1. REPAGLINIDE. [Suspect]
     Active Substance: REPAGLINIDE
     Indication: PRODUCT USED FOR UNKNOWN INDICATION
     Dosage: 1 MG, QD
     Route: 065
  2. METFORMIN HYDROCHLORIDE. [Suspect]
     Active Substance: METFORMIN HYDROCHLORIDE
     Indication: TYPE 2 DIABETES MELLITUS
     Dosage: 850MG
     Route: 065
  3. ANAGRELIDE [Suspect]
     Active Substance: ANAGRELIDE
     Indication: PRODUCT USED FOR UNKNOWN INDICATION
     Dosage: 1MG
     Route: 065

REACTIONS (8)
  - Abdominal pain [Fatal]
  - Metabolic acidosis [Fatal]
  - Tachycardia [Fatal]
  - Dyspnoea [Fatal]
  - Hypotension [Fatal]
  - Diarrhoea [Fatal]
  - Hyperlactacidaemia [Fatal]
  - Hypoglycaemia [Fatal]
